FAERS Safety Report 8396635-4 (Version None)
Quarter: 2012Q1

REPORT INFORMATION
  Report Type: 
  Country: None (occurrence: None)
  Receive Date: 20120323
  Receipt Date: 20110331
  Transmission Date: 20120608
  Serious: Yes (Hospitalization)
  Sender: FDA-Public Use
  Company Number: 163-21880-11040105

PATIENT
  Age: 63 Year
  Sex: Female

DRUGS (2)
  1. REVLIMID [Suspect]
     Indication: MULTIPLE MYELOMA
     Dosage: 10 MG, DAILY FOR 21 DAYS, PO    5 MG, 1 IN 1 D, PO
     Route: 048
     Dates: start: 20100305
  2. REVLIMID [Suspect]
     Indication: MULTIPLE MYELOMA
     Dosage: 10 MG, DAILY FOR 21 DAYS, PO    5 MG, 1 IN 1 D, PO
     Route: 048
     Dates: start: 20100701

REACTIONS (3)
  - WHITE BLOOD CELL COUNT DECREASED [None]
  - DEHYDRATION [None]
  - INFLUENZA [None]
